FAERS Safety Report 9219187 (Version 1)
Quarter: 2013Q2

REPORT INFORMATION
  Report Type: Spontaneous
  Country: US (occurrence: US)
  Receive Date: 20130409
  Receipt Date: 20130409
  Transmission Date: 20140414
  Serious: Yes (Hospitalization)
  Sender: FDA-Public Use
  Company Number: US-BAYER-2013-042564

PATIENT
  Age: 45 Year
  Sex: Female

DRUGS (6)
  1. YAZ [Suspect]
     Indication: MENORRHAGIA
  2. YAZ [Suspect]
     Indication: DYSMENORRHOEA
  3. DILAUDID [Concomitant]
  4. IBUPROFEN [Concomitant]
     Dosage: 600 MG, 4 TIMES A DAY
  5. TORADOL [Concomitant]
     Dosage: UNK,EVERY 6 HOURS
  6. MAVIN [Concomitant]

REACTIONS (1)
  - Pulmonary embolism [None]
